FAERS Safety Report 9155954 (Version 3)
Quarter: 2013Q2

REPORT INFORMATION
  Report Type: Spontaneous
  Country: AU (occurrence: AU)
  Receive Date: 20130311
  Receipt Date: 20130408
  Transmission Date: 20140414
  Serious: Yes (Other)
  Sender: FDA-Public Use
  Company Number: AU-ROCHE-1198125

PATIENT
  Age: 12 Year
  Sex: Male

DRUGS (3)
  1. ACTEMRA [Suspect]
     Indication: PRODUCT USED FOR UNKNOWN INDICATION
     Dosage: 2/52 INFUSION
     Route: 065
  2. ACTEMRA [Suspect]
     Dosage: 3/52 INFUSION
     Route: 065
  3. ACTEMRA [Suspect]
     Dosage: 4/52 INFUSION
     Route: 065

REACTIONS (5)
  - Hepatitis [Recovered/Resolved]
  - Hepatic mass [Recovered/Resolved]
  - Joint effusion [Recovered/Resolved]
  - Cushingoid [Recovered/Resolved]
  - Epstein-Barr virus infection [Recovered/Resolved]
